FAERS Safety Report 9801441 (Version 1)
Quarter: 2014Q1

REPORT INFORMATION
  Report Type: Spontaneous
  Country: FR (occurrence: FR)
  Receive Date: 20140107
  Receipt Date: 20140107
  Transmission Date: 20141002
  Serious: Yes (Life-Threatening)
  Sender: FDA-Public Use
  Company Number: FR-GE HEALTHCARE MEDICAL DIAGNOSTICS-OMPQ-PR-1312S-1476

PATIENT
  Age: 77 Year
  Sex: Female

DRUGS (5)
  1. OMNIPAQUE [Suspect]
     Indication: PRODUCT USED FOR UNKNOWN INDICATION
     Route: 042
     Dates: start: 20131211, end: 20131211
  2. OMNIPAQUE [Suspect]
     Indication: THERAPEUTIC PROCEDURE
  3. XYLOCAINE [Suspect]
     Route: 013
     Dates: start: 20131211, end: 20131211
  4. RISORDAN [Suspect]
     Route: 013
     Dates: start: 20131211, end: 20131211
  5. HEPARIN CHOAY [Suspect]
     Route: 013
     Dates: start: 20131211, end: 20131211

REACTIONS (1)
  - Asthmatic crisis [Recovered/Resolved]
